FAERS Safety Report 4723402-2 (Version None)
Quarter: 2005Q3

REPORT INFORMATION
  Report Type: 
  Country: None (occurrence: None)
  Receive Date: 20050721
  Receipt Date: 20050721
  Transmission Date: 20060218
  Serious: Yes (Life-Threatening)
  Sender: FDA-Public Use
  Company Number: None

PATIENT
  Age: 45 Year
  Sex: Male
  Weight: 84 kg

DRUGS (2)
  1. PROZAC [Suspect]
     Indication: DEPRESSION
     Dosage: ORAL
     Route: 048
     Dates: start: 20050401, end: 20050623
  2. ALBUTEROL [Concomitant]

REACTIONS (10)
  - ANTICHOLINERGIC SYNDROME [None]
  - BLOOD PRESSURE INCREASED [None]
  - CONDITION AGGRAVATED [None]
  - DEPRESSED LEVEL OF CONSCIOUSNESS [None]
  - DEPRESSION [None]
  - DRUG TOXICITY [None]
  - HEART RATE INCREASED [None]
  - SUICIDE ATTEMPT [None]
  - THREAT OF REDUNDANCY [None]
  - WEIGHT DECREASED [None]
